FAERS Safety Report 19754882 (Version 1)
Quarter: 2021Q3

REPORT INFORMATION
  Report Type: Spontaneous
  Country: LT (occurrence: LT)
  Receive Date: 20210827
  Receipt Date: 20210827
  Transmission Date: 20211014
  Serious: Yes (Hospitalization, Other)
  Sender: FDA-Public Use
  Company Number: LT-MACLEODS PHARMACEUTICALS US LTD-MAC2021032436

PATIENT

DRUGS (3)
  1. CELECOXIB 100 MG [Suspect]
     Active Substance: CELECOXIB
     Indication: INFLAMMATORY MYOFIBROBLASTIC TUMOUR
     Dosage: 100 MILLIGRAM, QD, 24 HOUR
     Route: 065
     Dates: start: 202001, end: 202001
  2. PREDNISOLONE. [Suspect]
     Active Substance: PREDNISOLONE
     Dosage: 35 MILLIGRAM, QD, TAPERING BY 5 MG
     Route: 065
     Dates: start: 202001, end: 202001
  3. PREDNISOLONE. [Suspect]
     Active Substance: PREDNISOLONE
     Indication: INFLAMMATORY MYOFIBROBLASTIC TUMOUR
     Dosage: 40 MILLIGRAM, QD
     Route: 065
     Dates: start: 202001

REACTIONS (8)
  - Escherichia infection [Recovering/Resolving]
  - Klebsiella infection [Recovering/Resolving]
  - Cholangitis [Recovering/Resolving]
  - Sepsis [Recovering/Resolving]
  - Treatment failure [Recovering/Resolving]
  - C-reactive protein increased [Recovering/Resolving]
  - Pseudomonas infection [Recovering/Resolving]
  - Enterococcal infection [Recovering/Resolving]

NARRATIVE: CASE EVENT DATE: 2020
